FAERS Safety Report 8712042 (Version 2)
Quarter: 2013Q2

REPORT INFORMATION
  Report Type: Spontaneous
  Country: US (occurrence: None)
  Receive Date: 20120718
  Receipt Date: 20130415
  Transmission Date: 20140414
  Serious: Yes (Other)
  Sender: FDA-Public Use
  Company Number: 2012032852

PATIENT
  Age: 54 Year
  Sex: Female
  Weight: 64.86 kg

DRUGS (1)
  1. HIZENTRA [Suspect]
     Dosage: START DATE 2010;4 GM VIAL;INFUSE 1.5-3 HOURS
     Route: 058

REACTIONS (1)
  - NEPHROLITHIASIS [None]
